FAERS Safety Report 11329271 (Version 1)
Quarter: 2015Q3

REPORT INFORMATION
  Report Type: Spontaneous
  Country: VN (occurrence: VN)
  Receive Date: 20150803
  Receipt Date: 20150803
  Transmission Date: 20151125
  Serious: Yes (Death)
  Sender: FDA-Public Use
  Company Number: VN-MERCK-1507VNM013819

PATIENT
  Sex: Female
  Weight: 65 kg

DRUGS (1)
  1. JANUVIA [Suspect]
     Active Substance: SITAGLIPTIN PHOSPHATE
     Dosage: ONE TABLET (50 MG) ONCE A DAY
     Route: 048
     Dates: start: 20130428

REACTIONS (1)
  - Death [Fatal]
